FAERS Safety Report 8255271-0 (Version None)
Quarter: 2012Q1

REPORT INFORMATION
  Report Type: 
  Country: None (occurrence: None)
  Receive Date: 20120329
  Receipt Date: 20120318
  Transmission Date: 20120608
  Serious: Yes (Hospitalization, Disabling)
  Sender: FDA-Public Use
  Company Number: DSA_55765_2012

PATIENT
  Age: 65 Year
  Sex: Female

DRUGS (2)
  1. FLAGYL [Suspect]
     Indication: INFECTION
     Dosage: (3 DF QD)
     Dates: start: 20070107
  2. ANTIBIOTICS [Concomitant]

REACTIONS (5)
  - PAIN [None]
  - NASOPHARYNGITIS [None]
  - NERVE INJURY [None]
  - HYPOAESTHESIA [None]
  - HYPERAESTHESIA [None]
